FAERS Safety Report 24014064 (Version 2)
Quarter: 2024Q2

REPORT INFORMATION
  Report Type: Spontaneous
  Country: CA (occurrence: CA)
  Receive Date: 20240626
  Receipt Date: 20240628
  Transmission Date: 20240716
  Serious: Yes (Hospitalization)
  Sender: FDA-Public Use
  Company Number: CA-MYLANLABS-2024M1055380

PATIENT
  Sex: Male
  Weight: 63 kg

DRUGS (19)
  1. CLOZAPINE [Interacting]
     Active Substance: CLOZAPINE
     Indication: Psychiatric care
     Dosage: 100 MILLIGRAM, QD (100.0 MILLIGRAM 1 EVERY1 DAYS)
     Route: 048
  2. CLOZAPINE [Interacting]
     Active Substance: CLOZAPINE
     Indication: Product used for unknown indication
     Dosage: 100 MILLIGRAM, QD (100.0 MILLIGRAM 1 EVERY1 DAYS)
     Route: 048
  3. CLOZAPINE [Interacting]
     Active Substance: CLOZAPINE
     Dosage: 2.5 MILLILITER, QD (2.5 ML 1 EVERY 1 DAYS)
     Route: 048
  4. CLOZAPINE [Interacting]
     Active Substance: CLOZAPINE
     Dosage: 75 MILLIGRAM, QD (75.0 MILLIGRAM 1 EVERY 1 DAYS)
     Route: 048
  5. FLUVOXAMINE [Interacting]
     Active Substance: FLUVOXAMINE
     Indication: Psychiatric care
     Dosage: 12.5 MILLIGRAM, QD (12.5 MILLIGRAM 1 EVERY 1 DAYS)
     Route: 048
  6. FLUVOXAMINE [Interacting]
     Active Substance: FLUVOXAMINE
     Dosage: 50 MILLIGRAM, QD (50.0 MILLIGRAM 1 EVERY 1 DAYS)
     Route: 048
  7. QUETIAPINE [Interacting]
     Active Substance: QUETIAPINE
     Indication: Psychiatric care
     Dosage: 500 MILLIGRAM, QD (500.0 MILLIGRAM 1 EVERY 1 DAYS)
     Route: 048
  8. QUETIAPINE [Interacting]
     Active Substance: QUETIAPINE
     Dosage: 100 MILLIGRAM, QD (100.0 MILLIGRAM 1 EVERY 1 DAYS)
     Route: 048
  9. QUETIAPINE [Interacting]
     Active Substance: QUETIAPINE
     Dosage: 400 MILLIGRAM, QD (400.0 MILLIGRAM 1 EVERY 1 DAYS)
     Route: 048
  10. QUETIAPINE [Interacting]
     Active Substance: QUETIAPINE
     Dosage: 450 MILLIGRAM, QD (450.0 MILLIGRAM 1 EVERY 1 DAYS)
     Route: 048
  11. BENZTROPINE MESYLATE [Interacting]
     Active Substance: BENZTROPINE MESYLATE
     Indication: Extrapyramidal disorder
     Dosage: UNK, TID (3 EVERY 1 DAYS)
     Route: 030
  12. BENZTROPINE MESYLATE [Interacting]
     Active Substance: BENZTROPINE MESYLATE
     Indication: Extrapyramidal disorder
     Dosage: UNK, TID (3 EVERY 1 DAYS)
     Route: 048
  13. LORAZEPAM [Interacting]
     Active Substance: LORAZEPAM
     Indication: Agitation
     Dosage: UNK, QID (4 EVERY 1 DAYS)
     Route: 048
  14. LORAZEPAM [Interacting]
     Active Substance: LORAZEPAM
     Indication: Agitation
     Dosage: UNK, QID (4 EVERY 1 DAYS)
     Route: 030
  15. LOXAPINE SUCCINATE [Interacting]
     Active Substance: LOXAPINE SUCCINATE
     Indication: Agitation
     Dosage: UNK, QID (4 EVERY 1 DAYS)
     Route: 030
  16. LOXAPINE SUCCINATE [Interacting]
     Active Substance: LOXAPINE SUCCINATE
     Indication: Agitation
     Dosage: UNK, QID (4 EVERY 1 DAYS)
     Route: 048
  17. PROPRANOLOL HYDROCHLORIDE [Interacting]
     Active Substance: PROPRANOLOL HYDROCHLORIDE
     Indication: Product used for unknown indication
     Dosage: 10 MILLIGRAM, BID (10.0 MILLIGRAM 2 EVERY 1 DAYS)
     Route: 048
  18. BREXPIPRAZOLE [Concomitant]
     Active Substance: BREXPIPRAZOLE
     Indication: Psychiatric care
     Dosage: 1 MILLIGRAM, QD (1.0 MILLIGRAM 1 EVERY 1 DAYS)
     Route: 048
  19. POLYETHYLENE GLYCOL 3350 [Concomitant]
     Active Substance: POLYETHYLENE GLYCOL 3350
     Dosage: 17 GRAM, QD (17.0 GRAM 1 EVERY 1 DAYS)
     Route: 048

REACTIONS (16)
  - Condition aggravated [Not Recovered/Not Resolved]
  - Confusional state [Not Recovered/Not Resolved]
  - Constipation [Not Recovered/Not Resolved]
  - Depression [Not Recovered/Not Resolved]
  - Drug interaction [Not Recovered/Not Resolved]
  - Drug level below therapeutic [Not Recovered/Not Resolved]
  - Drug level decreased [Not Recovered/Not Resolved]
  - Dysphemia [Not Recovered/Not Resolved]
  - Fatigue [Not Recovered/Not Resolved]
  - Hypoaesthesia [Not Recovered/Not Resolved]
  - Memory impairment [Not Recovered/Not Resolved]
  - Mental disorder [Not Recovered/Not Resolved]
  - Sedation [Not Recovered/Not Resolved]
  - Somnolence [Not Recovered/Not Resolved]
  - Thinking abnormal [Not Recovered/Not Resolved]
  - Treatment noncompliance [Not Recovered/Not Resolved]
